FAERS Safety Report 9540100 (Version 4)
Quarter: 2013Q4

REPORT INFORMATION
  Report Type: Spontaneous
  Country: JP (occurrence: JP)
  Receive Date: 20130920
  Receipt Date: 20131121
  Transmission Date: 20140711
  Serious: Yes (Other)
  Sender: FDA-Public Use
  Company Number: JP-JNJFOC-20130911108

PATIENT
  Age: 9 Decade
  Sex: Female

DRUGS (3)
  1. TRAMCET [Suspect]
     Indication: PAIN
     Dosage: 4 PER DAY
     Route: 048
     Dates: start: 20130913, end: 20130917
  2. LYRICA [Suspect]
     Indication: PAIN
     Route: 048
     Dates: start: 20130916, end: 20130917
  3. LOXONIN [Suspect]
     Indication: PAIN
     Dosage: 1 PER 1 DAY
     Route: 048

REACTIONS (1)
  - Interstitial lung disease [Recovering/Resolving]
